FAERS Safety Report 8570583-9 (Version None)
Quarter: 2012Q3

REPORT INFORMATION
  Report Type: 
  Country: None (occurrence: None)
  Receive Date: 20120804
  Receipt Date: 20120723
  Transmission Date: 20120928
  Serious: Yes (Life-Threatening, Other)
  Sender: FDA-Public Use
  Company Number: GB-ACCORD-014045

PATIENT
  Age: 49 Year
  Sex: Female

DRUGS (5)
  1. ZOPICLONE [Concomitant]
     Dosage: 2.5 MG. UNK, ONGOING USE FOR YEARS, STILL TAKING.
     Route: 048
  2. AMOXICILLIN [Concomitant]
     Indication: TOOTHACHE
     Route: 048
     Dates: start: 20120116, end: 20120126
  3. TOPIRAMATE [Suspect]
     Indication: SCHIZOPHRENIA
     Dosage: 300 MG, QD
     Route: 048
     Dates: start: 20070101, end: 20120121
  4. CLOZAPINE [Suspect]
     Indication: SCHIZOPHRENIA
     Dosage: 650 MG, QD
     Route: 048
     Dates: start: 20060101, end: 20120109
  5. MIRTAZAPINE [Suspect]
     Indication: DEPRESSION
     Dosage: 45 MG, QD
     Route: 048
     Dates: end: 20120121

REACTIONS (1)
  - NEUTROPENIA [None]
